FAERS Safety Report 7003934-7 (Version None)
Quarter: 2010Q3

REPORT INFORMATION
  Report Type: 
  Country: None (occurrence: None)
  Receive Date: 20100920
  Receipt Date: 20100127
  Transmission Date: 20110219
  Serious: No
  Sender: FDA-Public Use
  Company Number: US-WYE-H12779309

PATIENT
  Age: 82 Year
  Sex: Male
  Weight: 81.72 kg

DRUGS (3)
  1. PRISTIQ [Suspect]
     Indication: DEPRESSION
     Route: 048
     Dates: start: 20091201
  2. ALPRAZOLAM [Concomitant]
  3. PEPCID [Concomitant]

REACTIONS (2)
  - FATIGUE [None]
  - INSOMNIA [None]
